FAERS Safety Report 6857384-4 (Version None)
Quarter: 2010Q3

REPORT INFORMATION
  Report Type: 
  Country: None (occurrence: None)
  Receive Date: 20100719
  Receipt Date: 20100707
  Transmission Date: 20110219
  Serious: Yes (Other)
  Sender: FDA-Public Use
  Company Number: CA-PFIZER INC-2010084626

PATIENT
  Age: 63 Year
  Sex: Male

DRUGS (4)
  1. CHAMPIX [Suspect]
     Dosage: UNK
     Dates: start: 20100602, end: 20100601
  2. ADALAT [Concomitant]
     Dosage: UNK
     Dates: start: 20000101
  3. PRAVASTATIN [Concomitant]
     Dosage: UNK
  4. ZOPICLONE [Concomitant]
     Dosage: UNK, AT BEDTIME

REACTIONS (4)
  - OEDEMA PERIPHERAL [None]
  - PARAESTHESIA [None]
  - RASH [None]
  - SKIN EXFOLIATION [None]
